FAERS Safety Report 9527821 (Version 1)
Quarter: 2013Q1

REPORT INFORMATION
  Report Type: Spontaneous
  Country: US (occurrence: None)
  Receive Date: 20130314
  Receipt Date: 20130314
  Transmission Date: 20140127
  Serious: No
  Sender: FDA-Public Use
  Company Number: 1211USA000248

PATIENT
  Age: 52 Year
  Sex: Male

DRUGS (3)
  1. RIBAVIRIN [Suspect]
     Indication: HEPATITIS C
     Route: 048
     Dates: start: 20121013, end: 20121221
  2. VICTRELIS [Suspect]
     Indication: HEPATITIS C
     Dates: start: 20121104, end: 20121221
  3. PEGASYS [Suspect]
     Indication: HEPATITIS C
     Dates: start: 20121013, end: 20121221

REACTIONS (8)
  - Injection site pruritus [None]
  - Pruritus [None]
  - Crying [None]
  - Anger [None]
  - Full blood count decreased [None]
  - Blood disorder [None]
  - Asthenia [None]
  - Dizziness [None]
